FAERS Safety Report 10616362 (Version 1)
Quarter: 2014Q4

REPORT INFORMATION
  Report Type: Spontaneous
  Country: CA (occurrence: CA)
  Receive Date: 20141201
  Receipt Date: 20141201
  Transmission Date: 20150529
  Serious: Yes (Other)
  Sender: FDA-Public Use
  Company Number: CA-ELI_LILLY_AND_COMPANY-CA201411007401

PATIENT
  Age: 31 Year
  Sex: Female
  Weight: 56 kg

DRUGS (2)
  1. MOBICOX [Suspect]
     Active Substance: MELOXICAM
     Indication: PRODUCT USED FOR UNKNOWN INDICATION
     Dosage: 1 UNK, UNK
     Route: 065
  2. CYMBALTA [Suspect]
     Active Substance: DULOXETINE HYDROCHLORIDE
     Indication: PRODUCT USED FOR UNKNOWN INDICATION
     Dosage: 60 MG, OTHER
     Route: 048

REACTIONS (3)
  - Blood luteinising hormone decreased [Recovered/Resolved]
  - Blood follicle stimulating hormone decreased [Recovered/Resolved]
  - Vaginal haemorrhage [Recovered/Resolved]
